FAERS Safety Report 22114799 (Version 1)
Quarter: 2023Q1

REPORT INFORMATION
  Report Type: Spontaneous
  Country: None (occurrence: US)
  Receive Date: 20230320
  Receipt Date: 20230320
  Transmission Date: 20230418
  Serious: Yes (Other)
  Sender: FDA-Public Use
  Company Number: US-STI Pharma LLC-2139265

PATIENT
  Age: 56 Year
  Sex: Female

DRUGS (21)
  1. ETHAMBUTOL HYDROCHLORIDE [Suspect]
     Active Substance: ETHAMBUTOL HYDROCHLORIDE
     Dates: start: 2023
  2. AMIKACIN [Concomitant]
     Active Substance: AMIKACIN
  3. CLOFAZIMINE [Concomitant]
     Active Substance: CLOFAZIMINE
  4. ALBUTEROL [Concomitant]
     Active Substance: ALBUTEROL
  5. AZELASTINE. [Concomitant]
     Active Substance: AZELASTINE HYDROCHLORIDE
  6. BUPROPION HYDROCHLORIDE XL [Concomitant]
     Active Substance: BUPROPION HYDROCHLORIDE
  7. DULOXETINE [Concomitant]
     Active Substance: DULOXETINE
  8. EMGALITY [Concomitant]
     Active Substance: GALCANEZUMAB-GNLM
  9. HYDROCHLOROTHIAZIDE [Concomitant]
     Active Substance: HYDROCHLOROTHIAZIDE
  10. LAMOTRIGINE [Concomitant]
     Active Substance: LAMOTRIGINE
  11. MONTELUKAST [Concomitant]
     Active Substance: MONTELUKAST SODIUM
  12. NORTRIPTYLINE [Concomitant]
     Active Substance: NORTRIPTYLINE
  13. PANTOPRAZOLE [Concomitant]
     Active Substance: PANTOPRAZOLE
  14. PRAVASTATIN [Concomitant]
     Active Substance: PRAVASTATIN
  15. SUMATRIPTAN [Concomitant]
     Active Substance: SUMATRIPTAN
  16. TRAZODONE [Concomitant]
     Active Substance: TRAZODONE HYDROCHLORIDE
  17. TRELEGY ELLIPTA [Concomitant]
     Active Substance: FLUTICASONE FUROATE\UMECLIDINIUM BROMIDE\VILANTEROL TRIFENATATE
  18. XIIDRA [Concomitant]
     Active Substance: LIFITEGRAST
  19. ZOLMITRIPTAN [Concomitant]
     Active Substance: ZOLMITRIPTAN
  20. NUZYRA [Concomitant]
     Active Substance: OMADACYCLINE
     Route: 048
     Dates: start: 20230103
  21. AZITHROMYCIN [Concomitant]
     Active Substance: AZITHROMYCIN

REACTIONS (2)
  - Nausea [Recovering/Resolving]
  - Sputum culture positive [Unknown]
